FAERS Safety Report 8138499-X (Version None)
Quarter: 2012Q1

REPORT INFORMATION
  Report Type: 
  Country: None (occurrence: None)
  Receive Date: 20120215
  Receipt Date: 20120201
  Transmission Date: 20120608
  Serious: Yes (Other)
  Sender: FDA-Public Use
  Company Number: US-AMGEN-US373165

PATIENT
  Age: 14 Year
  Sex: Female
  Weight: 75 kg

DRUGS (4)
  1. ETANERCEPT [Suspect]
     Indication: JUVENILE ARTHRITIS
     Dosage: 50 MG, QWK
     Route: 058
     Dates: start: 20080913
  2. FOLIC ACID [Concomitant]
     Dosage: 1 MG, QD
     Route: 048
  3. MELOXICAM [Concomitant]
     Dosage: 15 MG, QD
     Route: 048
  4. METHOTREXATE [Suspect]
     Indication: JUVENILE ARTHRITIS
     Dosage: 25 MG, QWK
     Route: 058
     Dates: start: 20080913

REACTIONS (1)
  - DYSPHORIA [None]
